FAERS Safety Report 5815911-X (Version None)
Quarter: 2008Q3

REPORT INFORMATION
  Report Type: 
  Country: None (occurrence: None)
  Receive Date: 20080716
  Receipt Date: 20080716
  Transmission Date: 20090109
  Serious: Yes (Other)
  Sender: FDA-Public Use
  Company Number: None

PATIENT
  Age: 33 Year
  Sex: Female
  Weight: 129.2752 kg

DRUGS (1)
  1. OXYTOCIN [Suspect]
     Indication: LABOUR STIMULATION

REACTIONS (1)
  - UTERINE HYPERTONUS [None]
